FAERS Safety Report 14062167 (Version 1)
Quarter: 2017Q4

REPORT INFORMATION
  Report Type: Spontaneous
  Country: US (occurrence: US)
  Receive Date: 20171009
  Receipt Date: 20171009
  Transmission Date: 20180321
  Serious: No
  Sender: FDA-Public Use
  Company Number: US-PFIZER INC-2017431263

PATIENT
  Age: 35 Year
  Sex: Female

DRUGS (1)
  1. SUTENT [Suspect]
     Active Substance: SUNITINIB MALATE
     Indication: METASTATIC RENAL CELL CARCINOMA
     Dosage: 50 MG, CYCLIC (DAILY FOR 2 WEEKS ON AND 1 WEEK OFF)

REACTIONS (8)
  - Dysgeusia [Unknown]
  - Skin fissures [Unknown]
  - Fatigue [Unknown]
  - Dry skin [Unknown]
  - Depression [Unknown]
  - Skin exfoliation [Unknown]
  - Blister [Unknown]
  - Appetite disorder [Unknown]
